FAERS Safety Report 8045685-6 (Version None)
Quarter: 2012Q1

REPORT INFORMATION
  Report Type: 
  Country: None (occurrence: None)
  Receive Date: 20120113
  Receipt Date: 20120103
  Transmission Date: 20120608
  Serious: Yes (Hospitalization)
  Sender: FDA-Public Use
  Company Number: FR-SANOFI-AVENTIS-2012SA000517

PATIENT
  Age: 37 Year
  Sex: Male

DRUGS (6)
  1. ESOMEPRAZOLE SODIUM [Suspect]
     Route: 065
  2. LANTUS [Suspect]
     Indication: TYPE 1 DIABETES MELLITUS
     Route: 058
     Dates: start: 20070101
  3. TEGRETOL [Suspect]
     Route: 048
  4. VALPROIC ACID [Suspect]
     Route: 048
  5. ATORVASTATIN CALCIUM [Suspect]
     Route: 048
  6. LORMETAZEPAM [Suspect]
     Route: 065
     Dates: start: 20090101, end: 20111101

REACTIONS (3)
  - ASTHMA [None]
  - ANOSMIA [None]
  - OBSTRUCTIVE AIRWAYS DISORDER [None]
